FAERS Safety Report 6262978-3 (Version None)
Quarter: 2009Q3

REPORT INFORMATION
  Report Type: 
  Country: None (occurrence: None)
  Receive Date: 20090710
  Receipt Date: 20090706
  Transmission Date: 20100115
  Serious: Yes (Other)
  Sender: FDA-Public Use
  Company Number: US-JNJCH-2009017457

PATIENT
  Sex: Female

DRUGS (1)
  1. NEOSPORIN [Suspect]
     Indication: ACCIDENTAL EXPOSURE
     Dosage: TEXT:3 SPRAYS ONE TIME
     Route: 048
     Dates: start: 20090201, end: 20090201

REACTIONS (7)
  - ACCIDENTAL EXPOSURE [None]
  - CHOKING [None]
  - DYSPNOEA [None]
  - HYPERVENTILATION [None]
  - INCORRECT ROUTE OF DRUG ADMINISTRATION [None]
  - PRODUCT QUALITY ISSUE [None]
  - THROAT IRRITATION [None]
